FAERS Safety Report 6533533-2 (Version None)
Quarter: 2010Q1

REPORT INFORMATION
  Report Type: 
  Country: None (occurrence: None)
  Receive Date: 20100111
  Receipt Date: 20100106
  Transmission Date: 20100710
  Serious: Yes (Other)
  Sender: FDA-Public Use
  Company Number: JP-JNJFOC-20090908792

PATIENT
  Sex: Female
  Weight: 49 kg

DRUGS (12)
  1. DOXORUBICIN HCL [Suspect]
     Indication: OVARIAN CANCER RECURRENT
     Dosage: CYCLE 1
     Route: 042
     Dates: start: 20090515, end: 20090820
  2. DOXORUBICIN HCL [Suspect]
     Dosage: CYCLE 4
     Route: 042
     Dates: start: 20090515, end: 20090820
  3. DOXORUBICIN HCL [Suspect]
     Dosage: CYCLE 3
     Route: 042
     Dates: start: 20090515, end: 20090820
  4. DOXORUBICIN HCL [Suspect]
     Dosage: CYCLE 2
     Route: 042
     Dates: start: 20090515, end: 20090820
  5. WYPAX [Concomitant]
     Route: 048
  6. LEVOMEPROMAZINE MALEATE [Concomitant]
     Route: 048
  7. NAUZELIN [Concomitant]
     Indication: PROPHYLAXIS
     Route: 054
  8. GARASONE [Concomitant]
     Route: 061
  9. HACHIAZULE [Concomitant]
     Route: 065
  10. PYDOXAL [Concomitant]
     Route: 048
  11. HIBON [Concomitant]
     Route: 048
  12. DEXALTIN [Concomitant]
     Route: 061

REACTIONS (4)
  - INTERSTITIAL LUNG DISEASE [None]
  - NEUTROPHIL COUNT DECREASED [None]
  - PLATELET COUNT DECREASED [None]
  - PNEUMONIA BACTERIAL [None]
